FAERS Safety Report 6212655-X (Version None)
Quarter: 2009Q2

REPORT INFORMATION
  Report Type: 
  Country: None (occurrence: None)
  Receive Date: 20090603
  Receipt Date: 20090522
  Transmission Date: 20091009
  Serious: Yes (Hospitalization)
  Sender: FDA-Public Use
  Company Number: EE-WYE-H09460809

PATIENT
  Age: 22 Year
  Sex: Female
  Weight: 55 kg

DRUGS (5)
  1. EFFEXOR XR [Suspect]
     Indication: DEPRESSION
     Route: 048
     Dates: start: 20081217, end: 20090513
  2. EFFEXOR XR [Suspect]
     Route: 048
     Dates: start: 20090514
  3. LANTUS [Concomitant]
     Indication: TYPE 1 DIABETES MELLITUS
     Dosage: 16 UNITS/SOLUTION/ONCE DAILY (MORNING)
  4. NOVORAPID [Concomitant]
     Indication: TYPE 1 DIABETES MELLITUS
     Dosage: 3-6 UNITS/SOLUTION/THREE TIMES DAILY
  5. SEROQUEL [Concomitant]
     Dates: start: 20081217

REACTIONS (1)
  - EPILEPSY [None]
